FAERS Safety Report 9472567 (Version 1)
Quarter: 2013Q3

REPORT INFORMATION
  Report Type: Spontaneous
  Country: GB (occurrence: GB)
  Receive Date: 20130823
  Receipt Date: 20130823
  Transmission Date: 20140515
  Serious: Yes (Life-Threatening, Hospitalization, Disabling, Other)
  Sender: FDA-Public Use
  Company Number: GB-MYLANLABS-2013S1017934

PATIENT
  Age: 66 Year
  Sex: Female
  Weight: 52 kg

DRUGS (8)
  1. GABAPENTIN [Suspect]
     Indication: FIBROMYALGIA
     Route: 048
     Dates: start: 20120901
  2. STRONTIUM RANELATE [Suspect]
     Indication: OSTEOARTHRITIS
     Route: 048
     Dates: start: 20120901, end: 20130730
  3. STRONTIUM RANELATE [Suspect]
     Indication: OSTEOPOROSIS
     Route: 048
     Dates: start: 20120901, end: 20130730
  4. STRONTIUM RANELATE [Suspect]
     Indication: FIBROMYALGIA
     Route: 048
     Dates: start: 20120901, end: 20130730
  5. AMITRIPTYLINE [Concomitant]
     Indication: PRODUCT USED FOR UNKNOWN INDICATION
  6. CALCICHEW D3 [Concomitant]
     Indication: PRODUCT USED FOR UNKNOWN INDICATION
  7. OMEPRAZOLE [Concomitant]
     Indication: PRODUCT USED FOR UNKNOWN INDICATION
  8. TRAMADOL [Concomitant]
     Indication: PRODUCT USED FOR UNKNOWN INDICATION

REACTIONS (2)
  - Purpura [Not Recovered/Not Resolved]
  - Vasculitic rash [Not Recovered/Not Resolved]
